FAERS Safety Report 9256797 (Version 3)
Quarter: 2013Q4

REPORT INFORMATION
  Report Type: Spontaneous
  Country: US (occurrence: US)
  Receive Date: 20130426
  Receipt Date: 20131018
  Transmission Date: 20140711
  Serious: Yes (Hospitalization, Disabling)
  Sender: FDA-Public Use
  Company Number: US-ASTRAZENECA-2013SE27557

PATIENT
  Age: 33 Year
  Sex: Male
  Weight: 97.5 kg

DRUGS (12)
  1. NEXIUM [Suspect]
     Indication: DYSPEPSIA
     Route: 048
     Dates: start: 2004, end: 2011
  2. NEXIUM [Suspect]
     Indication: DYSPEPSIA
     Route: 048
     Dates: start: 2004, end: 2011
  3. NEXIUM [Suspect]
     Indication: GASTROOESOPHAGEAL REFLUX DISEASE
     Route: 048
     Dates: start: 2004, end: 2011
  4. NEXIUM [Suspect]
     Indication: DYSPEPSIA
     Dosage: 40 MG TAKE ONE CAPSULE BY
     Route: 048
     Dates: start: 20080226
  5. NEXIUM [Suspect]
     Indication: DYSPEPSIA
     Dosage: 40 MG TAKE ONE CAPSULE BY
     Route: 048
     Dates: start: 20080226
  6. NEXIUM [Suspect]
     Indication: GASTROOESOPHAGEAL REFLUX DISEASE
     Dosage: 40 MG TAKE ONE CAPSULE BY
     Route: 048
     Dates: start: 20080226
  7. NEXIUM [Suspect]
     Indication: DYSPEPSIA
     Route: 048
     Dates: start: 2006, end: 2011
  8. NEXIUM [Suspect]
     Indication: DYSPEPSIA
     Route: 048
     Dates: start: 2006, end: 2011
  9. NEXIUM [Suspect]
     Indication: GASTROOESOPHAGEAL REFLUX DISEASE
     Route: 048
     Dates: start: 2006, end: 2011
  10. PROTONIX [Concomitant]
     Indication: GASTROOESOPHAGEAL REFLUX DISEASE
     Dosage: 20 MG,1 TIME A DAY, JUST FOR THE TRIAL PERIOD OF ABOUT 3 TO 4 DAYS
  11. SIMVASTATIN [Concomitant]
  12. PREVACID [Concomitant]
     Indication: GASTROOESOPHAGEAL REFLUX DISEASE
     Dosage: ONE/DAY

REACTIONS (14)
  - Lower limb fracture [Unknown]
  - Hand fracture [Unknown]
  - Ankle fracture [Unknown]
  - Hypersensitivity [Unknown]
  - Osteoporosis [Unknown]
  - Bone density decreased [Unknown]
  - Wound infection [Unknown]
  - Fibula fracture [Unknown]
  - Bone disorder [Unknown]
  - Upper limb fracture [Unknown]
  - Nephrolithiasis [Unknown]
  - Androgen deficiency [Unknown]
  - Fall [Unknown]
  - Osteopenia [Unknown]
